FAERS Safety Report 20095007 (Version 1)
Quarter: 2021Q4

REPORT INFORMATION
  Report Type: Report from Study
  Country: PE (occurrence: PE)
  Receive Date: 20211122
  Receipt Date: 20211122
  Transmission Date: 20220303
  Serious: Yes (Death)
  Sender: FDA-Public Use
  Company Number: PE-JNJFOC-20211138233

PATIENT
  Age: 60 Year
  Sex: Female

DRUGS (1)
  1. SIMPONI [Suspect]
     Active Substance: GOLIMUMAB
     Indication: Rheumatoid arthritis
     Dosage: LAST ADMINISTRATION WAS ON 21-SEP-2021
     Route: 058
     Dates: start: 20210115

REACTIONS (2)
  - Pneumonia [Fatal]
  - Dengue fever [Fatal]

NARRATIVE: CASE EVENT DATE: 20210101
